FAERS Safety Report 10286799 (Version 1)
Quarter: 2014Q3

REPORT INFORMATION
  Report Type: Spontaneous
  Country: US (occurrence: None)
  Receive Date: 20140707
  Receipt Date: 20140707
  Transmission Date: 20150326
  Serious: Yes (Other)
  Sender: FDA-Public Use
  Company Number: None

PATIENT
  Age: 52 Year
  Sex: Female

DRUGS (1)
  1. ENOXAPARIN 120MG WINTHROP [Suspect]
     Active Substance: ENOXAPARIN
     Indication: DEEP VEIN THROMBOSIS
     Route: 058
     Dates: start: 20130125

REACTIONS (4)
  - Injection site haemorrhage [None]
  - Injection site bruising [None]
  - Injection site mass [None]
  - Injection site pain [None]

NARRATIVE: CASE EVENT DATE: 20140602
